FAERS Safety Report 8801267 (Version 2)
Quarter: 2015Q2

REPORT INFORMATION
  Report Type: Report from Study
  Country: US (occurrence: US)
  Receive Date: 20120921
  Receipt Date: 20150617
  Transmission Date: 20150821
  Serious: Yes (Death)
  Sender: FDA-Public Use
  Company Number: US-ROCHE-1125762

PATIENT
  Sex: Female
  Weight: 73 kg

DRUGS (11)
  1. AVASTIN [Suspect]
     Active Substance: BEVACIZUMAB
     Indication: MALIGNANT NEOPLASM OF UTERINE ADNEXA
  2. TAXOL [Concomitant]
     Active Substance: PACLITAXEL
     Route: 042
  3. ALOXI [Concomitant]
     Active Substance: PALONOSETRON HYDROCHLORIDE
     Route: 042
  4. AVASTIN [Suspect]
     Active Substance: BEVACIZUMAB
     Indication: OVARIAN CANCER
     Route: 042
     Dates: start: 20060110
  5. CIMETIDINE [Concomitant]
     Active Substance: CIMETIDINE
     Route: 042
  6. 5-FLUOROURACIL [Concomitant]
     Active Substance: FLUOROURACIL
  7. BENADRYL [Concomitant]
     Active Substance: DIPHENHYDRAMINE HYDROCHLORIDE
     Route: 042
  8. DEXAMETHASONE. [Concomitant]
     Active Substance: DEXAMETHASONE
     Route: 065
  9. LEUCOVORIN [Concomitant]
     Active Substance: LEUCOVORIN
  10. SOLU-CORTEF [Concomitant]
     Active Substance: HYDROCORTISONE SODIUM SUCCINATE
     Route: 042
  11. ARANESP [Concomitant]
     Active Substance: DARBEPOETIN ALFA
     Route: 042

REACTIONS (5)
  - Abdominal pain [Unknown]
  - Back pain [Unknown]
  - Death [Fatal]
  - Dizziness [Unknown]
  - Off label use [Unknown]
